FAERS Safety Report 10214216 (Version 2)
Quarter: 2014Q4

REPORT INFORMATION
  Report Type: Spontaneous
  Country: IT (occurrence: None)
  Receive Date: 20140530
  Receipt Date: 20141014
  Transmission Date: 20150528
  Serious: Yes (Other)
  Sender: FDA-Public Use
  Company Number: 2014MPI00606

PATIENT
  Age: 54 Year
  Sex: Male

DRUGS (6)
  1. ZELITREX (VALACICLOVIR HYDROCHLORIDE) (VALACICLOVIR HYDROCHLORIDE) [Concomitant]
     Active Substance: VALACYCLOVIR HYDROCHLORIDE
  2. TRIMETON (CHLORPHENAMINE MALEATE) [Concomitant]
  3. MEPRAL (OMEPRAZOLE) [Concomitant]
  4. SOLDESAM (DEXAMETHASONE SODIUM PHOSPHATE) [Concomitant]
  5. PERFALGAN [Concomitant]
     Active Substance: ACETAMINOPHEN
  6. ADCETRIS [Suspect]
     Active Substance: BRENTUXIMAB VEDOTIN
     Indication: NON-HODGKIN^S LYMPHOMA
     Route: 042
     Dates: start: 20140404, end: 20140424

REACTIONS (2)
  - Hypertransaminasaemia [None]
  - Hyperglycaemia [None]

NARRATIVE: CASE EVENT DATE: 20140507
